FAERS Safety Report 8112781-4 (Version None)
Quarter: 2012Q1

REPORT INFORMATION
  Report Type: 
  Country: None (occurrence: None)
  Receive Date: 20120131
  Receipt Date: 20120124
  Transmission Date: 20120608
  Serious: Yes (Hospitalization, Other)
  Sender: FDA-Public Use
  Company Number: SP05478

PATIENT
  Age: 60 Year
  Sex: Female

DRUGS (4)
  1. XIFAXAN [Suspect]
     Indication: HEPATIC ENCEPHALOPATHY
     Dosage: 1100 MG (550 MG, 2 IN 1 D), ORAL
     Route: 048
     Dates: start: 20110101, end: 20120117
  2. LASIX [Concomitant]
  3. LISINOPRIL [Suspect]
     Indication: BLOOD PRESSURE
     Dates: end: 20120117
  4. SPIRONOLACTONE [Concomitant]

REACTIONS (8)
  - URINE OUTPUT DECREASED [None]
  - HAEMODIALYSIS [None]
  - HEPATIC FAILURE [None]
  - WEIGHT INCREASED [None]
  - BLOOD PRESSURE INCREASED [None]
  - HEPATORENAL SYNDROME [None]
  - RENAL IMPAIRMENT [None]
  - RENAL FAILURE [None]
